FAERS Safety Report 4384293-5 (Version None)
Quarter: 2004Q2

REPORT INFORMATION
  Report Type: 
  Country: None (occurrence: None)
  Receive Date: 20040624
  Receipt Date: 20031118
  Transmission Date: 20050107
  Serious: Yes (Other)
  Sender: FDA-Public Use
  Company Number: US-ROCHE-352250

PATIENT
  Sex: Male

DRUGS (6)
  1. COPEGUS [Suspect]
     Indication: DRUG USE FOR UNKNOWN INDICATION
     Dosage: 4 X 200 MG A.M. AND 3 X 200 MG P.M.
     Dates: start: 20030125
  2. PEG-INTRON [Suspect]
     Indication: DRUG USE FOR UNKNOWN INDICATION
     Dates: start: 20030125
  3. MULTIVIT [Concomitant]
  4. VIT B COMPLEX [Concomitant]
  5. TYLENOL [Concomitant]
  6. IBUPROFEN [Concomitant]

REACTIONS (3)
  - DRUG EXPOSURE DURING PREGNANCY [None]
  - PLACENTA PRAEVIA [None]
  - PREMATURE BABY [None]
